FAERS Safety Report 12680149 (Version 1)
Quarter: 2016Q3

REPORT INFORMATION
  Report Type: Spontaneous
  Country: US (occurrence: None)
  Receive Date: 20160823
  Receipt Date: 20160823
  Transmission Date: 20161109
  Serious: Yes (Hospitalization)
  Sender: FDA-Public Use
  Company Number: None

PATIENT
  Age: 75 Year
  Sex: Female
  Weight: 120 kg

DRUGS (3)
  1. CARBOPLATIN. [Suspect]
     Active Substance: CARBOPLATIN
     Dates: end: 20101013
  2. HERCEPTIN [Suspect]
     Active Substance: TRASTUZUMAB
     Dates: end: 20110623
  3. TAXOTERE [Suspect]
     Active Substance: DOCETAXEL
     Dates: end: 20101013

REACTIONS (3)
  - Endometrial cancer stage I [None]
  - Vaginal haemorrhage [None]
  - Uterine leiomyoma [None]

NARRATIVE: CASE EVENT DATE: 20150416
